FAERS Safety Report 17893607 (Version 1)
Quarter: 2020Q2

REPORT INFORMATION
  Report Type: Spontaneous
  Country: ES (occurrence: ES)
  Receive Date: 20200615
  Receipt Date: 20200615
  Transmission Date: 20200714
  Serious: Yes (Hospitalization)
  Sender: FDA-Public Use
  Company Number: ES-CADILA HEALTHCARE LIMITED-ES-ZYDUS-026685

PATIENT

DRUGS (2)
  1. RAMIPRIL. [Suspect]
     Active Substance: RAMIPRIL
     Indication: CARDIAC FAILURE
     Dosage: 1/24 H
     Dates: start: 2016, end: 2016
  2. DERMATRANS [GLYCERYL TRINITRATE] [Suspect]
     Active Substance: NITROGLYCERIN
     Indication: CARDIAC FAILURE
     Dosage: 1/24
     Dates: start: 2016, end: 2016

REACTIONS (3)
  - Presyncope [Unknown]
  - Hypotension [Unknown]
  - Depressed mood [Unknown]

NARRATIVE: CASE EVENT DATE: 201601
